FAERS Safety Report 10464971 (Version 1)
Quarter: 2014Q3

REPORT INFORMATION
  Report Type: Spontaneous
  Country: US (occurrence: US)
  Receive Date: 20140919
  Receipt Date: 20140919
  Transmission Date: 20150326
  Serious: Yes (Hospitalization)
  Sender: FDA-Public Use
  Company Number: US-GLAXOSMITHKLINE-A1089232A

PATIENT
  Age: 63 Year
  Sex: Female

DRUGS (9)
  1. WELLBUTRIN [Concomitant]
     Active Substance: BUPROPION HYDROCHLORIDE
  2. OXYGEN. [Concomitant]
     Active Substance: OXYGEN
  3. ZOLOFT [Concomitant]
     Active Substance: SERTRALINE HYDROCHLORIDE
  4. KLONOPIN [Concomitant]
     Active Substance: CLONAZEPAM
  5. VENTOLIN [Suspect]
     Active Substance: ALBUTEROL SULFATE
     Indication: CHRONIC OBSTRUCTIVE PULMONARY DISEASE
     Dosage: 2PUFF TWICE PER DAY
     Route: 055
     Dates: start: 1990
  6. SYMBICORT [Concomitant]
     Active Substance: BUDESONIDE\FORMOTEROL FUMARATE DIHYDRATE
  7. CARVEDILOL. [Concomitant]
     Active Substance: CARVEDILOL
  8. XANAX [Concomitant]
     Active Substance: ALPRAZOLAM
  9. ALBUTEROL NEBULIZED [Concomitant]
     Active Substance: ALBUTEROL

REACTIONS (5)
  - Memory impairment [Recovering/Resolving]
  - Fall [Recovering/Resolving]
  - Joint arthroplasty [Recovering/Resolving]
  - Hip fracture [Recovering/Resolving]
  - Hip surgery [Recovering/Resolving]

NARRATIVE: CASE EVENT DATE: 20140902
